FAERS Safety Report 5211715-X (Version None)
Quarter: 2007Q1

REPORT INFORMATION
  Report Type: 
  Country: None (occurrence: None)
  Receive Date: 20070116
  Receipt Date: 20061227
  Transmission Date: 20070707
  Serious: Yes (Other)
  Sender: FDA-Public Use
  Company Number: TRP_0866_2006

PATIENT
  Age: 52 Year
  Sex: Female
  Weight: 113.3993 kg

DRUGS (2)
  1. RIBASPHERE [Suspect]
     Indication: HEPATITIS C
     Dosage: 1200 MG QDAY PO
     Route: 048
     Dates: start: 20060725, end: 20060101
  2. PEGASYS [Suspect]
     Indication: HEPATITIS C
     Dosage: 180 MCG QWK SC
     Route: 058
     Dates: start: 20060725, end: 20060101

REACTIONS (16)
  - AGGRESSION [None]
  - ALOPECIA [None]
  - DECREASED APPETITE [None]
  - DEPRESSION [None]
  - DIARRHOEA [None]
  - HOMICIDAL IDEATION [None]
  - ILL-DEFINED DISORDER [None]
  - NAUSEA [None]
  - NEGATIVE THOUGHTS [None]
  - PARALYSIS [None]
  - POLLAKIURIA [None]
  - RECTAL LESION [None]
  - SUICIDAL IDEATION [None]
  - URINE ODOUR ABNORMAL [None]
  - VAGINAL LESION [None]
  - WEIGHT DECREASED [None]
